FAERS Safety Report 9521842 (Version 1)
Quarter: 2013Q1

REPORT INFORMATION
  Report Type: Spontaneous
  Country: US (occurrence: None)
  Receive Date: 20130305
  Receipt Date: 20130305
  Transmission Date: 20140127
  Serious: Yes (Other)
  Sender: FDA-Public Use
  Company Number: 163-21880-12070910

PATIENT
  Age: 62 Year
  Sex: Male

DRUGS (8)
  1. REVLIMID (LENALIDOMIDE) (CAPSULES) [Suspect]
     Indication: PLASMA CELL MYELOMA
     Dosage: 25 MG, X 21 DAYS OFF 28 DAYS, PO
     Dates: start: 201106, end: 201206
  2. DECADRON(DEXAMETHASONE)(UNKNOWN) [Concomitant]
  3. ASPIRIN(ACETYLSALICYLIC ACID)(UNKNOWN) [Concomitant]
  4. NORCO(VICODIN)(UNKNOWN) [Concomitant]
  5. PROZAC(FLUOXETINE HYDROCHLORIDE)(UNKNOWN) [Concomitant]
  6. XANAX(ALPRAZOLAM)(UNKNOWN) [Concomitant]
  7. COZAAR(LOSARTAN POTASSIUM)(UNKNO [Concomitant]
  8. LOPRESSOR(METOPROLOL TARTRATE)(UNKNOWN) [Concomitant]

REACTIONS (1)
  - Diverticulitis [None]
